FAERS Safety Report 8161614-9 (Version None)
Quarter: 2012Q1

REPORT INFORMATION
  Report Type: 
  Country: None (occurrence: None)
  Receive Date: 20120224
  Receipt Date: 20120220
  Transmission Date: 20120608
  Serious: Yes (Hospitalization)
  Sender: FDA-Public Use
  Company Number: SE-SANOFI-AVENTIS-2011SA063595

PATIENT
  Age: 49 Year
  Sex: Female

DRUGS (8)
  1. RAMIPRIL [Concomitant]
     Route: 065
  2. MULTAQ [Suspect]
     Route: 048
     Dates: start: 20110501, end: 20110923
  3. FUROSEMIDE [Concomitant]
     Route: 065
  4. MULTAQ [Suspect]
     Indication: ATRIAL FIBRILLATION
     Route: 048
     Dates: start: 20110101, end: 20110301
  5. LIPITOR [Concomitant]
     Route: 065
  6. CORDARONE [Suspect]
     Indication: ATRIAL FIBRILLATION
     Route: 065
     Dates: start: 20110926, end: 20110926
  7. ASPIRIN [Concomitant]
     Route: 065
  8. METOPROLOL TARTRATE [Concomitant]
     Route: 065

REACTIONS (3)
  - CARDIAC ARREST [None]
  - VENTRICULAR FIBRILLATION [None]
  - TORSADE DE POINTES [None]
